FAERS Safety Report 8138523-4 (Version None)
Quarter: 2012Q1

REPORT INFORMATION
  Report Type: 
  Country: None (occurrence: None)
  Receive Date: 20120213
  Receipt Date: 20120203
  Transmission Date: 20120608
  Serious: Yes (Hospitalization)
  Sender: FDA-Public Use
  Company Number: 1000027476

PATIENT
  Age: 63 Year
  Sex: Female

DRUGS (3)
  1. LOSARTAN POTASSIUM [Suspect]
     Indication: HYPERTENSION
     Dosage: 50 MG (150 MG, 1 IN 1D), ORAL
     Route: 048
     Dates: start: 20110120
  2. NEBIVOLOL HCL [Suspect]
     Indication: HYPERTENSION
     Dosage: 5 MG (5 MG, 1 IN 1 D),ORAL
     Route: 048
     Dates: start: 20110122
  3. EPROSARTAN COMP (EPROSARTAN MESILATE, HYDROCHLOROTHIAZIDE) [Suspect]
     Indication: HYPERTENSION
     Dosage: 600 MG/12.5 MG (1 IN 1 D), ORAL
     Route: 048
     Dates: start: 20110722, end: 20120122

REACTIONS (2)
  - SYNCOPE [None]
  - HYPOTENSION [None]
